FAERS Safety Report 8177828-8 (Version None)
Quarter: 2012Q1

REPORT INFORMATION
  Report Type: 
  Country: None (occurrence: None)
  Receive Date: 20120301
  Receipt Date: 20120221
  Transmission Date: 20120608
  Serious: Yes (Hospitalization, Disabling, Other)
  Sender: FDA-Public Use
  Company Number: US-MERCK-1107USA03583

PATIENT
  Age: 70 Year
  Sex: Female

DRUGS (3)
  1. FOSAMAX [Suspect]
     Route: 048
     Dates: start: 19991217
  2. FOSAMAX [Suspect]
     Indication: OSTEOPOROSIS
     Route: 048
     Dates: start: 19970101, end: 20090101
  3. FOSAMAX [Suspect]
     Route: 048

REACTIONS (33)
  - CARDIAC FAILURE [None]
  - WEIGHT DECREASED [None]
  - CARDIAC MURMUR [None]
  - ARTHROPATHY [None]
  - JAW DISORDER [None]
  - MITRAL VALVE DISEASE [None]
  - HYPERLIPIDAEMIA [None]
  - TYMPANIC MEMBRANE PERFORATION [None]
  - ORAL INFECTION [None]
  - UPPER LIMB FRACTURE [None]
  - DENTAL CARIES [None]
  - DRUG INTOLERANCE [None]
  - JAW FRACTURE [None]
  - INFECTION [None]
  - TOOTH INFECTION [None]
  - CEREBROVASCULAR ACCIDENT [None]
  - FISTULA [None]
  - DIARRHOEA [None]
  - OSTEONECROSIS OF JAW [None]
  - WOUND NECROSIS [None]
  - BONE LOSS [None]
  - CORONARY ARTERY DISEASE [None]
  - IMPAIRED HEALING [None]
  - CARDIOVASCULAR DISORDER [None]
  - HIP FRACTURE [None]
  - TOOTH DISORDER [None]
  - GASTROOESOPHAGEAL REFLUX DISEASE [None]
  - BLOOD CHOLESTEROL INCREASED [None]
  - CATARACT [None]
  - GINGIVAL DISORDER [None]
  - RHEUMATOID ARTHRITIS [None]
  - NAUSEA [None]
  - INAPPROPRIATE SCHEDULE OF DRUG ADMINISTRATION [None]
